FAERS Safety Report 16788805 (Version 1)
Quarter: 2019Q3

REPORT INFORMATION
  Report Type: Spontaneous
  Country: CO (occurrence: CO)
  Receive Date: 20190910
  Receipt Date: 20190910
  Transmission Date: 20191005
  Serious: Yes (Other)
  Sender: FDA-Public Use
  Company Number: CO-BAXTER-2019BAX016956

PATIENT
  Age: 27 Year
  Sex: Male

DRUGS (1)
  1. VANCOCIN CP INYECTABLE [Suspect]
     Active Substance: VANCOMYCIN HYDROCHLORIDE
     Indication: ARTHRITIS BACTERIAL
     Route: 042
     Dates: start: 20190710, end: 20190713

REACTIONS (4)
  - Drug hypersensitivity [Recovered/Resolved]
  - Leukocytosis [Unknown]
  - Neutrophilia [Unknown]
  - Device related thrombosis [Unknown]

NARRATIVE: CASE EVENT DATE: 201907
